FAERS Safety Report 14215934 (Version 2)
Quarter: 2017Q4

REPORT INFORMATION
  Report Type: Spontaneous
  Country: JP (occurrence: JP)
  Receive Date: 20171122
  Receipt Date: 20171211
  Transmission Date: 20180321
  Serious: Yes (Other)
  Sender: FDA-Public Use
  Company Number: JP-SUCAMPO PHARMACEUTICALS INC.-SPI201701432

PATIENT
  Sex: Female

DRUGS (1)
  1. AMITIZA [Suspect]
     Active Substance: LUBIPROSTONE
     Dosage: UNK, BID
     Route: 048

REACTIONS (5)
  - Malaise [Recovered/Resolved]
  - Palpitations [Recovered/Resolved]
  - Dehydration [Recovered/Resolved]
  - Depressed level of consciousness [Recovered/Resolved]
  - Diarrhoea [Recovered/Resolved]

NARRATIVE: CASE EVENT DATE: 20171111
